FAERS Safety Report 11375963 (Version 1)
Quarter: 2015Q3

REPORT INFORMATION
  Report Type: Other
  Country: GB (occurrence: GB)
  Receive Date: 20150813
  Receipt Date: 20150813
  Transmission Date: 20151125
  Serious: Yes (Other)
  Sender: FDA-Public Use
  Company Number: GB-MYLANLABS-2015M1026002

PATIENT

DRUGS (16)
  1. LEVOTHYROXINE. [Concomitant]
     Active Substance: LEVOTHYROXINE
     Dosage: 1 DF, QD (EACH MORNING)
     Dates: start: 20141014
  2. SPIRIVA [Concomitant]
     Active Substance: TIOTROPIUM BROMIDE MONOHYDRATE
     Dosage: 2 DF, QD
     Dates: start: 20141014
  3. CLARITHROMYCIN. [Suspect]
     Active Substance: CLARITHROMYCIN
     Dosage: UNK
     Dates: start: 20150722
  4. LACTULOSE. [Concomitant]
     Active Substance: LACTULOSE
     Dosage: 5-15ML TO BE TAKEN TWICE DAILY AS NECESSARY
     Dates: start: 20141014
  5. MONOMIL [Concomitant]
     Dosage: 1 DF, QD (EACH MORNING)
     Dates: start: 20141014
  6. SALBUTAMOL [Concomitant]
     Active Substance: ALBUTEROL
     Dosage: 2 DF, UNK (AS NECESSARY)
     Route: 055
     Dates: start: 20141014
  7. VERAPAMIL HYDROCHLORIDE. [Concomitant]
     Active Substance: VERAPAMIL HYDROCHLORIDE
     Dosage: 1 DF, BID
     Dates: start: 20141014
  8. FUROSEMIDE. [Concomitant]
     Active Substance: FUROSEMIDE
     Dosage: 2 DF, QD (EVERY MORNING)
     Dates: start: 20150318
  9. HYPROMELLOSE [Concomitant]
     Active Substance: HYPROMELLOSES
     Dosage: 1 GTT,UNK (AS NECESSARY)
     Route: 047
     Dates: start: 20141014
  10. CLOPIDOGREL [Concomitant]
     Active Substance: CLOPIDOGREL BISULFATE
     Dosage: 1 DF, QD
     Dates: start: 20141014
  11. DIGOXIN. [Concomitant]
     Active Substance: DIGOXIN
     Dosage: 1 DF, QD
     Dates: start: 20141014
  12. OMEPRAZOLE. [Concomitant]
     Active Substance: OMEPRAZOLE
     Dosage: 2 DF, QD
     Dates: start: 20150307
  13. AMOXICILLIN. [Concomitant]
     Active Substance: AMOXICILLIN
     Dosage: 1 DF, TID
     Dates: start: 20150430, end: 20150505
  14. COCODAMOL [Concomitant]
     Active Substance: ACETAMINOPHEN\CODEINE PHOSPHATE
     Dosage: 2 DF, AS NECESSARY (THERR TIMES A DAY WHEN REQUIRED, MAXIMUM  6 PER DAY.)
     Dates: start: 20141014
  15. BETAMETHASONE VALERATE. [Concomitant]
     Active Substance: BETAMETHASONE VALERATE
     Dosage: 1 DF, BID
     Dates: start: 20150615, end: 20150629
  16. SALMETEROL [Concomitant]
     Active Substance: SALMETEROL
     Dosage: 2 DF, BID
     Dates: start: 20141014

REACTIONS (2)
  - Urticaria [Recovering/Resolving]
  - Lip swelling [Unknown]

NARRATIVE: CASE EVENT DATE: 20150722
